FAERS Safety Report 4349851-2 (Version None)
Quarter: 2004Q2

REPORT INFORMATION
  Report Type: 
  Country: None (occurrence: None)
  Receive Date: 20040426
  Receipt Date: 20040416
  Transmission Date: 20050107
  Serious: Yes (Hospitalization)
  Sender: FDA-Public Use
  Company Number: GB-JNJFOC-20040403271

PATIENT
  Age: 57 Year
  Sex: Female

DRUGS (9)
  1. REMICADE [Suspect]
     Indication: RHEUMATOID ARTHRITIS
     Dosage: 165 MG, INTRAVENOUS
     Route: 042
     Dates: start: 20020821, end: 20031101
  2. DEPO-MEDROL [Concomitant]
  3. METHOTREXATE [Concomitant]
  4. HYDROXYCHLOROQUINE SULFATE [Concomitant]
  5. ETODOLAC [Concomitant]
  6. FOLIC ACID [Concomitant]
  7. AMITRIPTYLINE HCL [Concomitant]
  8. DICONAL (DICONAL) [Concomitant]
  9. HRT (ANDROGENS AND FEMALE SEX HORMONES IN COMB) [Concomitant]

REACTIONS (2)
  - NASOPHARYNGEAL DISORDER [None]
  - NEOPLASM [None]
